FAERS Safety Report 22610925 (Version 1)
Quarter: 2023Q2

REPORT INFORMATION
  Report Type: Report from Study
  Country: AU (occurrence: None)
  Receive Date: 20230616
  Receipt Date: 20230616
  Transmission Date: 20230721
  Serious: Yes (Hospitalization)
  Sender: FDA-Public Use
  Company Number: AU-ROCHE-3366783

PATIENT
  Age: 51 Year
  Sex: Female
  Weight: 76.8 kg

DRUGS (10)
  1. RLY-1971 [Suspect]
     Active Substance: RLY-1971
     Indication: Ovarian cancer recurrent
     Dosage: DOSE LAST STUDY DRUG ADMIN PRIOR AE/SAE: 40 MG?START DATE OF MOST RECENT DOSE OF STUDY DRUG PRIOR TO
     Route: 048
     Dates: start: 20230130
  2. ATEZOLIZUMAB [Suspect]
     Active Substance: ATEZOLIZUMAB
     Indication: Ovarian cancer recurrent
     Dosage: DOSE LAST STUDY DRUG ADMIN PRIOR AE :1200 MG?DOSE LAST STUDY DRUG ADMIN PRIOR SAE :40 MG?START DATE
     Route: 041
     Dates: start: 20230130
  3. THYROXINE [Concomitant]
     Active Substance: LEVOTHYROXINE
     Indication: Hypothyroidism
     Route: 048
     Dates: start: 202001
  4. ACETAMINOPHEN [Concomitant]
     Active Substance: ACETAMINOPHEN
     Indication: Pain
     Route: 048
     Dates: start: 2019
  5. IBUPROFEN [Concomitant]
     Active Substance: IBUPROFEN
     Indication: Pain
     Route: 048
     Dates: start: 2019
  6. LOPERAMIDE [Concomitant]
     Active Substance: LOPERAMIDE
     Indication: Diarrhoea
     Route: 048
     Dates: start: 2020
  7. DEXAMETHASONE [Concomitant]
     Active Substance: DEXAMETHASONE
     Indication: Pain
     Route: 048
     Dates: start: 20230109
  8. PREDNISOLONE [Concomitant]
     Active Substance: PREDNISOLONE
     Indication: Diarrhoea
     Route: 048
     Dates: start: 20230310
  9. CHOLECALCIFEROL [Concomitant]
     Active Substance: CHOLECALCIFEROL
     Route: 048
     Dates: start: 2023
  10. NIZATIDINE [Concomitant]
     Active Substance: NIZATIDINE
     Route: 048
     Dates: start: 20230411

REACTIONS (1)
  - Renal failure [Not Recovered/Not Resolved]

NARRATIVE: CASE EVENT DATE: 20230607
